FAERS Safety Report 19390351 (Version 2)
Quarter: 2021Q2

REPORT INFORMATION
  Report Type: Report from Study
  Country: None (occurrence: US)
  Receive Date: 20210608
  Receipt Date: 20210622
  Transmission Date: 20210717
  Serious: Yes (Hospitalization)
  Sender: FDA-Public Use
  Company Number: US-ABBVIE-20K-163-3714189-00

PATIENT
  Age: 73 Year
  Sex: Female
  Weight: 86.26 kg

DRUGS (2)
  1. HUMIRA [Suspect]
     Active Substance: ADALIMUMAB
     Indication: CROHN^S DISEASE
     Dosage: CITRATE FREE
     Route: 058
  2. HUMIRA [Suspect]
     Active Substance: ADALIMUMAB
     Route: 058

REACTIONS (6)
  - Vaginal haemorrhage [Recovered/Resolved]
  - Crohn^s disease [Recovered/Resolved]
  - COVID-19 [Recovered/Resolved]
  - Anaemia [Not Recovered/Not Resolved]
  - Aortic aneurysm [Recovering/Resolving]
  - Cardiac disorder [Unknown]

NARRATIVE: CASE EVENT DATE: 201902
